FAERS Safety Report 23125673 (Version 1)
Quarter: 2023Q4

REPORT INFORMATION
  Report Type: Spontaneous
  Country: US (occurrence: US)
  Receive Date: 20231030
  Receipt Date: 20231030
  Transmission Date: 20240110
  Serious: No
  Sender: FDA-Public Use
  Company Number: US-SANOFI-01813463

PATIENT
  Sex: Male

DRUGS (1)
  1. DUPIXENT [Suspect]
     Active Substance: DUPILUMAB
     Indication: Eczema
     Dosage: 300 MG, QOW

REACTIONS (5)
  - Skin bacterial infection [Recovered/Resolved]
  - Psoriasis [Recovered/Resolved]
  - Pruritus [Unknown]
  - Drug effect less than expected [Unknown]
  - Drug ineffective [Unknown]
